FAERS Safety Report 7419368-7 (Version None)
Quarter: 2011Q2

REPORT INFORMATION
  Report Type: 
  Country: None (occurrence: None)
  Receive Date: 20110415
  Receipt Date: 20110406
  Transmission Date: 20111010
  Serious: Yes (Hospitalization, Other)
  Sender: FDA-Public Use
  Company Number: US-ASTRAZENECA-2010SE21479

PATIENT
  Age: 67 Year
  Sex: Female
  Weight: 86.2 kg

DRUGS (17)
  1. SEROQUEL [Suspect]
     Route: 048
  2. CLONAZEPAM [Concomitant]
     Indication: ANXIETY
  3. ROBAXIN [Concomitant]
     Indication: MUSCLE SPASMS
  4. SEROQUEL [Suspect]
     Indication: SLEEP DISORDER
     Route: 048
     Dates: start: 20090101, end: 20100601
  5. SEROQUEL [Suspect]
     Indication: ANXIETY
     Route: 048
     Dates: start: 20090101, end: 20100601
  6. SEROQUEL [Suspect]
     Route: 048
  7. SEROQUEL [Suspect]
     Indication: ANTIDEPRESSANT THERAPY
     Route: 048
     Dates: start: 20090101, end: 20100601
  8. SEROQUEL [Suspect]
     Route: 048
  9. HYDROCODONE BITARTRATE [Concomitant]
     Indication: PAIN
  10. SEROQUEL [Suspect]
     Route: 048
     Dates: start: 20100601, end: 20100101
  11. CITALOPRAM HYDROBROMIDE [Concomitant]
     Indication: DEPRESSION
  12. ATIVAN [Concomitant]
     Indication: ANXIETY
  13. SEROQUEL [Suspect]
     Route: 048
     Dates: start: 20100601, end: 20100101
  14. METHOCARBAMOL [Concomitant]
     Indication: PAIN
  15. NEXIUM [Suspect]
     Route: 048
  16. SEROQUEL [Suspect]
     Route: 048
     Dates: start: 20100601, end: 20100101
  17. BLOOD PRESSURE MED [Concomitant]
     Indication: HYPERTENSION

REACTIONS (15)
  - BACK DISORDER [None]
  - TREMOR [None]
  - MIDDLE INSOMNIA [None]
  - FATIGUE [None]
  - DIZZINESS [None]
  - NERVOUSNESS [None]
  - RENAL FAILURE ACUTE [None]
  - DRUG DOSE OMISSION [None]
  - DYSPHONIA [None]
  - CEREBRAL HAEMORRHAGE [None]
  - SLEEP DISORDER [None]
  - INSOMNIA [None]
  - POOR QUALITY SLEEP [None]
  - ABNORMAL DREAMS [None]
  - SOMNOLENCE [None]
